FAERS Safety Report 6923842-7 (Version None)
Quarter: 2010Q3

REPORT INFORMATION
  Report Type: 
  Country: None (occurrence: None)
  Receive Date: 20100813
  Receipt Date: 20090915
  Transmission Date: 20110219
  Serious: No
  Sender: FDA-Public Use
  Company Number: US-BRISTOL-MYERS SQUIBB COMPANY-14781835

PATIENT
  Age: 34 Year
  Sex: Male

DRUGS (4)
  1. REYATAZ [Suspect]
     Dosage: LESS THAN 2 WEEKS
     Route: 048
  2. KEPPRA [Concomitant]
  3. TRUVADA [Concomitant]
  4. RITONAVIR [Concomitant]

REACTIONS (1)
  - RASH [None]
